FAERS Safety Report 9928016 (Version 2)
Quarter: 2014Q1

REPORT INFORMATION
  Report Type: Spontaneous
  Country: FR (occurrence: FR)
  Receive Date: 20140227
  Receipt Date: 20140227
  Transmission Date: 20141002
  Serious: Yes (Other)
  Sender: FDA-Public Use
  Company Number: FR-US-EMD SERONO, INC.-7134280

PATIENT
  Age: 42 Year
  Sex: Female
  Weight: 68 kg

DRUGS (5)
  1. REBIF [Suspect]
     Indication: RELAPSING-REMITTING MULTIPLE SCLEROSIS
     Route: 058
     Dates: start: 19990715
  2. LEVOTHYROX [Concomitant]
     Indication: HYPOTHYROIDISM
     Route: 048
     Dates: start: 200507
  3. OGAST [Concomitant]
     Indication: REFLUX GASTRITIS
     Route: 048
     Dates: start: 200501
  4. LANSOPRAZOLE [Concomitant]
     Indication: REFLUX GASTRITIS
     Route: 048
  5. TRINORDIOL [Concomitant]
     Indication: CONTRACEPTION
     Route: 048

REACTIONS (3)
  - Tooth infection [Recovered/Resolved]
  - Gingivitis [Not Recovered/Not Resolved]
  - Tooth loss [Not Recovered/Not Resolved]
